FAERS Safety Report 13705046 (Version 1)
Quarter: 2017Q2

REPORT INFORMATION
  Report Type: Spontaneous
  Country: US (occurrence: US)
  Receive Date: 20170629
  Receipt Date: 20170629
  Transmission Date: 20170830
  Serious: No
  Sender: FDA-Public Use
  Company Number: None

PATIENT
  Age: 65 Year

DRUGS (1)
  1. VALACYCLOVIR [Suspect]
     Active Substance: VALACYCLOVIR HYDROCHLORIDE
     Dosage: ?          OTHER DOSE:GM;?
     Route: 048
     Dates: start: 20170619, end: 20170622

REACTIONS (2)
  - Pruritus [None]
  - Dizziness [None]

NARRATIVE: CASE EVENT DATE: 20170629
